FAERS Safety Report 16677004 (Version 1)
Quarter: 2019Q3

REPORT INFORMATION
  Report Type: Spontaneous
  Country: US (occurrence: US)
  Receive Date: 20190807
  Receipt Date: 20190807
  Transmission Date: 20191004
  Serious: Yes (Other)
  Sender: FDA-Public Use
  Company Number: US-CURIUM-200800366

PATIENT
  Age: 65 Year

DRUGS (2)
  1. TECHNETIUM SULFIDE TC 99M COLLOID [Concomitant]
     Active Substance: TECHNETIUM TC-99M SULFUR COLLOID
     Indication: RADIOISOTOPE SCAN
     Dosage: UNKNOWN
     Route: 042
     Dates: start: 20081223, end: 20081223
  2. ULTRA-TECHNEKOW DTE [Suspect]
     Active Substance: TECHNETIUM TC-99M SODIUM PERTECHNETATE
     Indication: RADIOISOTOPE SCAN
     Route: 042
     Dates: start: 20081223, end: 20081223

REACTIONS (3)
  - Loss of consciousness [Recovered/Resolved]
  - Seizure [Recovered/Resolved]
  - Hyperhidrosis [Recovered/Resolved]

NARRATIVE: CASE EVENT DATE: 20081223
